FAERS Safety Report 4638892-3 (Version None)
Quarter: 2005Q2

REPORT INFORMATION
  Report Type: 
  Country: None (occurrence: None)
  Receive Date: 20050419
  Receipt Date: 20050408
  Transmission Date: 20051028
  Serious: Yes (Other)
  Sender: FDA-Public Use
  Company Number: PHBS2005US05117

PATIENT
  Age: 4 Month
  Sex: Male

DRUGS (7)
  1. ANTITHYMOCYTE IMMUNOGLOBULIN [Concomitant]
  2. METHYLPREDNISOLONE [Concomitant]
     Dosage: 20 MGKG/DAY
  3. AZATHIOPRINE [Suspect]
     Indication: HEART TRANSPLANT
  4. PREDNISONE [Concomitant]
  5. ANTITHYMOCYTE IMMUNOGLOBULIN (RABBIT) [Concomitant]
  6. TACROLIMUS [Suspect]
     Indication: HEART TRANSPLANT
  7. CYCLOSPORINE [Suspect]
     Indication: HEART TRANSPLANT

REACTIONS (11)
  - BONE MARROW DISORDER [None]
  - GASTROENTERITIS CLOSTRIDIAL [None]
  - HEART TRANSPLANT REJECTION [None]
  - HUMAN HERPES VIRUS 6 SEROLOGY POSITIVE [None]
  - LEUKOPENIA [None]
  - NEUTROPENIA [None]
  - OTITIS EXTERNA [None]
  - PSEUDOMONAS INFECTION [None]
  - SINUSITIS [None]
  - THROMBOCYTOPENIA [None]
  - TRANSAMINASES INCREASED [None]
